FAERS Safety Report 20878725 (Version 1)
Quarter: 2022Q2

REPORT INFORMATION
  Report Type: Spontaneous
  Country: US (occurrence: US)
  Receive Date: 20220526
  Receipt Date: 20220526
  Transmission Date: 20220721
  Serious: No
  Sender: FDA-Public Use
  Company Number: US-GLAXOSMITHKLINE-US2022078701

PATIENT
  Age: 59 Year
  Sex: Female

DRUGS (2)
  1. TRELEGY ELLIPTA [Suspect]
     Active Substance: FLUTICASONE FUROATE\UMECLIDINIUM BROMIDE\VILANTEROL TRIFENATATE
     Indication: Asthma
     Dosage: 100 UG, QD (USE ONE INHALATION BY MOUTH EVERYDAY)
     Route: 048
     Dates: start: 202112, end: 202204
  2. TRELEGY ELLIPTA [Suspect]
     Active Substance: FLUTICASONE FUROATE\UMECLIDINIUM BROMIDE\VILANTEROL TRIFENATATE
     Dosage: 200 UG, QD (INHALE ONE PUFF BY MOUTH ONCE A DAY AS DIRECTED)
     Route: 048
     Dates: start: 202204

REACTIONS (6)
  - Back pain [Recovered/Resolved]
  - Eye pain [Recovered/Resolved]
  - Headache [Recovered/Resolved]
  - Rhinorrhoea [Recovering/Resolving]
  - Oral candidiasis [Recovering/Resolving]
  - Drug ineffective [Unknown]

NARRATIVE: CASE EVENT DATE: 20211201
